FAERS Safety Report 24648378 (Version 1)
Quarter: 2024Q4

REPORT INFORMATION
  Report Type: Spontaneous
  Country: US (occurrence: US)
  Receive Date: 20241121
  Receipt Date: 20241121
  Transmission Date: 20250114
  Serious: No
  Sender: 3M
  Company Number: US-3MMEDICAL-2024-US-062158

PATIENT
  Age: 37 Year
  Sex: Female

DRUGS (2)
  1. SOLUPREP [Suspect]
     Active Substance: CHLORHEXIDINE GLUCONATE\ISOPROPYL ALCOHOL
     Indication: Preoperative care
     Dosage: 26 ML SINGLE USE
     Route: 061
  2. BETADINE [Concomitant]
     Active Substance: POVIDONE-IODINE
     Dosage: APPLIED PREOPERATIVELY

REACTIONS (3)
  - Erythema [Recovering/Resolving]
  - Pruritus [Recovering/Resolving]
  - Skin irritation [Recovering/Resolving]
